FAERS Safety Report 6150434-2 (Version None)
Quarter: 2009Q2

REPORT INFORMATION
  Report Type: 
  Country: None (occurrence: None)
  Receive Date: 20090409
  Receipt Date: 20090330
  Transmission Date: 20091009
  Serious: No
  Sender: FDA-Public Use
  Company Number: US-JNJFOC-20090400164

PATIENT
  Sex: Male
  Weight: 77.11 kg

DRUGS (13)
  1. FENTANYL TRANSDERMAL SYSTEM [Suspect]
     Indication: ARTHRALGIA
     Route: 062
  2. GENGRAF [Concomitant]
     Indication: PROPHYLAXIS AGAINST TRANSPLANT REJECTION
     Route: 048
  3. NORVASC [Concomitant]
     Route: 048
  4. NORVASC [Concomitant]
     Indication: HYPERTENSION
     Route: 048
  5. TRILEPTAL [Concomitant]
     Indication: CONVULSION
     Route: 048
  6. INSULIN [Concomitant]
     Indication: DIABETES MELLITUS
     Route: 058
  7. VITAMIN D3 [Concomitant]
     Indication: VITAMIN SUPPLEMENTATION
     Route: 048
  8. PREDNISONE TAB [Concomitant]
     Indication: IMMUNOSUPPRESSION
     Route: 048
  9. RAPAMUNE [Concomitant]
     Indication: INFECTION PROPHYLAXIS
     Route: 048
  10. ZOLOFT [Concomitant]
     Indication: DEPRESSION
     Route: 048
  11. ZOCOR [Concomitant]
     Indication: BLOOD CHOLESTEROL INCREASED
     Route: 048
  12. AVAPRO [Concomitant]
     Indication: HYPERTENSION
     Route: 048
  13. LOPRESSOR [Concomitant]
     Indication: HYPERTENSION
     Route: 048

REACTIONS (2)
  - DRUG INEFFECTIVE [None]
  - TREATMENT NONCOMPLIANCE [None]
